FAERS Safety Report 4555985-X (Version None)
Quarter: 2005Q1

REPORT INFORMATION
  Report Type: 
  Country: None (occurrence: None)
  Receive Date: 20050111
  Receipt Date: 20041206
  Transmission Date: 20050727
  Serious: Yes (Other)
  Sender: FDA-Public Use
  Company Number: PHEH2004US13007

PATIENT
  Age: 38 Year
  Sex: Female

DRUGS (1)
  1. ELIDEL [Suspect]
     Indication: ECZEMA
     Dosage: BID, TOPICAL
     Route: 061
     Dates: start: 20040901, end: 20041101

REACTIONS (2)
  - GRANULOMA [None]
  - LYMPHADENOPATHY [None]
